FAERS Safety Report 18651355 (Version 1)
Quarter: 2020Q4

REPORT INFORMATION
  Report Type: Spontaneous
  Country: IT (occurrence: IT)
  Receive Date: 20201222
  Receipt Date: 20201222
  Transmission Date: 20210114
  Serious: Yes (Hospitalization)
  Sender: FDA-Public Use
  Company Number: NVSC2020IT292572

PATIENT
  Age: 48 Year
  Sex: Female
  Weight: 58 kg

DRUGS (8)
  1. PACLITAXEL. [Suspect]
     Active Substance: PACLITAXEL
     Indication: BREAST CANCER
     Dosage: UNK (LAST DOSE BEFORE SAE WAS 90 MG/MQ ON 09 OCT 2020 NUMBER OF COURSES 6)
     Route: 042
     Dates: start: 20200608
  2. METHYLPREDNISOLONE. [Concomitant]
     Active Substance: METHYLPREDNISOLONE
     Indication: PRODUCT USED FOR UNKNOWN INDICATION
     Dosage: 60 MG,0.5
     Route: 065
     Dates: start: 20201022
  3. CARBOPLATIN. [Suspect]
     Active Substance: CARBOPLATIN
     Indication: BREAST CANCER
     Dosage: UNK TOTAL DOSE WAS AUC 2LAST DOSE BEFORE SAE WAS ON 09/OCT/2020NUMBER OF CYCLES 6
     Route: 042
     Dates: start: 20200608
  4. VANCOMYCIN [Concomitant]
     Active Substance: VANCOMYCIN
     Indication: PRODUCT USED FOR UNKNOWN INDICATION
     Dosage: 500 MG
     Route: 048
  5. ATEZOLIZUMAB. [Suspect]
     Active Substance: ATEZOLIZUMAB
     Indication: BREAST CANCER
     Dosage: UNK NUMBER OF COURSES WERE 6LAST DOSE BEFORE SAE WAS 01/OCT/2020
     Route: 041
     Dates: start: 20200608
  6. TRASTUZUMAB. [Suspect]
     Active Substance: TRASTUZUMAB
     Indication: BREAST CANCER
     Dosage: 6 MG/KG (NO. OF COURSES 6LAST DOSE BEFORE SAE WAS 6 MG/KG ON 01 OCT 2020)
     Route: 041
     Dates: start: 20200608
  7. METRONIDAZOLE. [Concomitant]
     Active Substance: METRONIDAZOLE
     Indication: PRODUCT USED FOR UNKNOWN INDICATION
     Dosage: 500MG (3 DAYS)
     Route: 042
  8. PERTUZUMAB. [Suspect]
     Active Substance: PERTUZUMAB
     Indication: BREAST CANCER
     Dosage: 420 MG LAST DOSE BEFORE SAE WAS 420 MG ON 01/OCT/2020NO. OF CYCLES 6
     Route: 042
     Dates: start: 20200608

REACTIONS (1)
  - Mucosal inflammation [Recovered/Resolved]

NARRATIVE: CASE EVENT DATE: 20201013
